FAERS Safety Report 5532295-5 (Version None)
Quarter: 2007Q4

REPORT INFORMATION
  Report Type: 
  Country: None (occurrence: None)
  Receive Date: 20071203
  Receipt Date: 20071129
  Transmission Date: 20080405
  Serious: Yes (Other)
  Sender: FDA-Public Use
  Company Number: US-BRISTOL-MYERS SQUIBB COMPANY-14000376

PATIENT
  Sex: Female

DRUGS (2)
  1. ABILIFY [Suspect]
     Dates: start: 20031101, end: 20050701
  2. ZYPREXA [Suspect]
     Dates: start: 19970201, end: 20031101

REACTIONS (7)
  - CARDIAC FAILURE [None]
  - DIABETES MELLITUS [None]
  - EYE DISORDER [None]
  - IMPLANTABLE DEFIBRILLATOR INSERTION [None]
  - INJURY [None]
  - OBESITY [None]
  - WEIGHT INCREASED [None]
